FAERS Safety Report 9168703 (Version 3)
Quarter: 2013Q2

REPORT INFORMATION
  Report Type: Spontaneous
  Country: BR (occurrence: BR)
  Receive Date: 20130318
  Receipt Date: 20130502
  Transmission Date: 20140414
  Serious: Yes (Other)
  Sender: FDA-Public Use
  Company Number: BR-PFIZER INC-2013087243

PATIENT
  Sex: Female

DRUGS (4)
  1. FRONTAL XR [Suspect]
     Indication: DEPRESSION
     Dosage: UNK
     Dates: start: 201209
  2. FRONTAL XR [Suspect]
     Indication: GENERALISED ANXIETY DISORDER
  3. LEXAPRO [Concomitant]
     Indication: ANXIETY
     Dosage: UNSPECIFIED DOSE, EVERY NIGHT
  4. STILNOX [Concomitant]
     Indication: SLEEP DISORDER
     Dosage: 10 MG, UNK

REACTIONS (4)
  - Cerebrovascular accident [Unknown]
  - Tachycardia [Unknown]
  - Drug ineffective [Unknown]
  - Activities of daily living impaired [Unknown]
